FAERS Safety Report 7292935-X (Version None)
Quarter: 2011Q1

REPORT INFORMATION
  Report Type: 
  Country: None (occurrence: None)
  Receive Date: 20110209
  Receipt Date: 20110209
  Transmission Date: 20110831
  Serious: Yes (Other)
  Sender: FDA-Public Use
  Company Number: None

PATIENT
  Age: 7 Year
  Sex: Female
  Weight: 24.6 kg

DRUGS (1)
  1. TAMIFLU [Suspect]
     Indication: INFLUENZA
     Dosage: I TEASPONE TWICE PER DAY PO
     Route: 048
     Dates: start: 20110207, end: 20110208

REACTIONS (3)
  - STRABISMUS [None]
  - HALLUCINATION, VISUAL [None]
  - PYREXIA [None]
